FAERS Safety Report 12843361 (Version 2)
Quarter: 2017Q1

REPORT INFORMATION
  Report Type: Spontaneous
  Country: FR (occurrence: FR)
  Receive Date: 20161013
  Receipt Date: 20170202
  Transmission Date: 20170428
  Serious: Yes (Other)
  Sender: FDA-Public Use
  Company Number: FR-EISAI MEDICAL RESEARCH-EC-2016-021158

PATIENT
  Age: 21 Year
  Sex: Female

DRUGS (8)
  1. FYCOMPA [Suspect]
     Active Substance: PERAMPANEL
     Route: 048
     Dates: start: 20160622, end: 20160705
  2. EPITOMAX [Concomitant]
     Active Substance: TOPIRAMATE
     Indication: PETIT MAL EPILEPSY
     Dosage: 400 MG
     Route: 048
  3. ZARONTIN [Concomitant]
     Active Substance: ETHOSUXIMIDE
     Indication: PETIT MAL EPILEPSY
     Dosage: 500 MG
     Route: 048
  4. URBANYL [Concomitant]
     Active Substance: CLOBAZAM
     Indication: PETIT MAL EPILEPSY
     Route: 048
  5. FYCOMPA [Suspect]
     Active Substance: PERAMPANEL
     Route: 048
     Dates: start: 20160706, end: 20160719
  6. FYCOMPA [Suspect]
     Active Substance: PERAMPANEL
     Dosage: DOWN-TITRATION
     Route: 048
     Dates: start: 20160825, end: 20160916
  7. FYCOMPA [Suspect]
     Active Substance: PERAMPANEL
     Route: 048
     Dates: start: 20160720, end: 20160824
  8. FYCOMPA [Suspect]
     Active Substance: PERAMPANEL
     Indication: PETIT MAL EPILEPSY
     Route: 048
     Dates: start: 20160608, end: 20160621

REACTIONS (2)
  - Seizure [Recovered/Resolved]
  - Weight increased [Recovering/Resolving]

NARRATIVE: CASE EVENT DATE: 201606
